FAERS Safety Report 7483133-5 (Version None)
Quarter: 2011Q2

REPORT INFORMATION
  Report Type: 
  Country: None (occurrence: None)
  Receive Date: 20110516
  Receipt Date: 20110505
  Transmission Date: 20111010
  Serious: Yes (Death)
  Sender: FDA-Public Use
  Company Number: FR-MERCK-1105FRA00032

PATIENT
  Age: 8 Month

DRUGS (4)
  1. PRIMAXIN [Suspect]
     Indication: SEPSIS
     Route: 051
  2. GENTAMICIN [Suspect]
     Indication: SEPSIS
     Route: 065
  3. VANCOMYCIN [Suspect]
     Indication: SEPSIS
     Route: 065
  4. METRONIDAZOLE [Suspect]
     Indication: SEPSIS
     Route: 065

REACTIONS (8)
  - HAEMODIALYSIS COMPLICATION [None]
  - TACHYPNOEA [None]
  - SEPSIS [None]
  - ALTERED STATE OF CONSCIOUSNESS [None]
  - CREPITATIONS [None]
  - CONDITION AGGRAVATED [None]
  - TREATMENT FAILURE [None]
  - DEATH [None]
